FAERS Safety Report 14279194 (Version 1)
Quarter: 2017Q4

REPORT INFORMATION
  Report Type: Spontaneous
  Country: US (occurrence: US)
  Receive Date: 20171212
  Receipt Date: 20171212
  Transmission Date: 20180321
  Serious: Yes (Death, Hospitalization, Other)
  Sender: FDA-Public Use
  Company Number: US-SAOL THERAPEUTICS-2017SAO01776

PATIENT
  Sex: Female

DRUGS (38)
  1. ASPIRIN EC [Concomitant]
     Active Substance: ASPIRIN
     Dosage: 81 MG, 2X/DAY
     Route: 048
  2. CLARITIN [Concomitant]
     Active Substance: LORATADINE
     Dosage: 10 MG, UP TO 1X/DAY
     Route: 048
  3. POTASSIUM GLUCONATE [Concomitant]
     Active Substance: POTASSIUM GLUCONATE
     Dosage: 595 MG, 1X/DAY
     Route: 048
  4. TYLENOL [Concomitant]
     Active Substance: ACETAMINOPHEN
     Dosage: 1000 MG, 3X/DAY
     Route: 048
  5. FERROUS SULFATE. [Concomitant]
     Active Substance: FERROUS SULFATE
     Dosage: 325 MG, 2X/DAY
     Route: 048
  6. TEA TREE OIL. [Concomitant]
     Active Substance: TEA TREE OIL
     Dosage: UNK, 1X/DAY
  7. VITAMIN D2 [Concomitant]
     Active Substance: ERGOCALCIFEROL
     Dosage: 50000 IU, 2X/WEEK
  8. EFFEXOR XR [Concomitant]
     Active Substance: VENLAFAXINE HYDROCHLORIDE
     Dosage: 37.5 MG, 1X/DAY
     Route: 048
  9. TEMOVATE [Concomitant]
     Active Substance: CLOBETASOL PROPIONATE
     Dosage: 1 DOSAGE UNITS, 2X/DAY
  10. ASELIN ASTEPRO [Concomitant]
     Dosage: UNK, UP TO 2X/DAY
     Route: 045
  11. LIORESAL [Suspect]
     Active Substance: BACLOFEN
     Indication: MULTIPLE SCLEROSIS
     Dosage: 1348.7 ?G, \DAY
     Route: 037
  12. GLUCOPHAGE XR [Concomitant]
     Active Substance: METFORMIN HYDROCHLORIDE
     Dosage: 500 MG, 1X/DAY
     Route: 048
  13. SENOKOT [Concomitant]
     Active Substance: SENNOSIDES
     Dosage: 17.2 MG, 2X/DAY
     Route: 048
  14. MYCOSTATIN [Concomitant]
     Active Substance: NYSTATIN
     Dosage: UNK, 4X/DAY
  15. PROVIGIL [Concomitant]
     Active Substance: MODAFINIL
     Dosage: 100 MG, 1X/DAY
     Route: 048
  16. PRED FORTE [Concomitant]
     Active Substance: PREDNISOLONE ACETATE
     Dosage: 1 GTT, 1X/DAY
     Route: 047
  17. BOTOX [Concomitant]
     Active Substance: ONABOTULINUMTOXINA
     Dosage: UNK, 4X/YEAR
  18. ADULT SUPPOSITORY [Concomitant]
     Dosage: 1 DOSAGE UNITS, UP TO 1X/DAY
     Route: 054
  19. NEOSPORIN [Concomitant]
     Active Substance: BACITRACIN ZINC\NEOMYCIN SULFATE\POLYMYXIN B SULFATE
     Dosage: 1 DOSAGE UNITS, UNK
  20. SIMETHICONE (DIMETHICONE) [Concomitant]
     Active Substance: DIMETHICONE
     Dosage: 1 TABLETS, 3X/DAY
  21. COLACE [Concomitant]
     Active Substance: DOCUSATE SODIUM
     Dosage: 100 MG, UP TO 3X/DAY
     Route: 048
  22. BIOTIN [Concomitant]
     Active Substance: BIOTIN
     Dosage: 100 MG, 3X/DAY
  23. FOSAMAX [Concomitant]
     Active Substance: ALENDRONATE SODIUM
     Dosage: 70 MG, 1X/WEEK
  24. HIPREX [Concomitant]
     Active Substance: METHENAMINE HIPPURATE
     Dosage: 1 G, 2X/DAY
  25. CALCIUM-CARBONATE-VITAMIN D3 [Concomitant]
     Dosage: 2 TABLETS, 2X/DAY
     Route: 048
  26. MIRALAX [Concomitant]
     Active Substance: POLYETHYLENE GLYCOL 3350
     Dosage: 1 DOSAGE UNITS, AS NEEDED
  27. ALIGN [Concomitant]
     Active Substance: BIFIDOBACTERIUM LONGUM SUBSP. INFANTIS
     Dosage: UNK, 1X/DAY
  28. OCEAN AYR [Concomitant]
     Dosage: 1 DOSAGE UNITS, AS NEEDED
     Route: 045
  29. LIORESAL [Concomitant]
     Active Substance: BACLOFEN
     Dosage: 10 MG, UP TO 4X/DAY
     Route: 048
  30. REGLAN [Concomitant]
     Active Substance: METOCLOPRAMIDE HYDROCHLORIDE
     Dosage: 10 MG, UP TO 3X/DAY
     Route: 048
  31. VITAMIN C [Concomitant]
     Active Substance: ASCORBIC ACID
     Dosage: 500 MG, 1X/DAY
     Route: 048
  32. MAG-OX [Concomitant]
     Active Substance: MAGNESIUM OXIDE
     Dosage: 400 MG, 1X/DAY
  33. FLONASE [Concomitant]
     Active Substance: FLUTICASONE PROPIONATE
     Dosage: UNK, 1X/DAY
     Route: 045
  34. DITROPAN XL [Concomitant]
     Active Substance: OXYBUTYNIN CHLORIDE
     Dosage: 10 MG, 1X/DAY
     Route: 048
  35. PREMARIN [Concomitant]
     Active Substance: ESTROGENS, CONJUGATED
     Dosage: 0.5 G, EVERY 48 HOURS
     Route: 067
  36. VIMPAT [Concomitant]
     Active Substance: LACOSAMIDE
     Dosage: 50 MG, 2X/DAY
     Route: 048
  37. PHILLIPS ORIGINAL MILK OF MAGNESIA [Concomitant]
     Active Substance: MAGNESIUM HYDROXIDE
     Dosage: UNK, AS NEEDED
     Route: 048
  38. VITAMIN B12 [Concomitant]
     Active Substance: CYANOCOBALAMIN
     Dosage: 1000 ?G, 1X/DAY

REACTIONS (18)
  - Pneumonia aspiration [Fatal]
  - Cardiac failure congestive [Fatal]
  - Somnolence [Unknown]
  - Acute myocardial infarction [Unknown]
  - Depressed level of consciousness [Unknown]
  - Vulvovaginal discomfort [Unknown]
  - Respiratory failure [Fatal]
  - Malnutrition [Unknown]
  - Diabetes mellitus [Unknown]
  - Multiple sclerosis [Fatal]
  - Left ventricular dysfunction [Unknown]
  - Atrial fibrillation [Unknown]
  - Urinary tract infection [Unknown]
  - Tachycardia [Unknown]
  - Hypothyroidism [None]
  - Encephalopathy [Unknown]
  - Sepsis [Unknown]
  - Arthralgia [Unknown]

NARRATIVE: CASE EVENT DATE: 2017
